FAERS Safety Report 6844344-2 (Version None)
Quarter: 2010Q3

REPORT INFORMATION
  Report Type: 
  Country: None (occurrence: None)
  Receive Date: 20100715
  Receipt Date: 20100708
  Transmission Date: 20110219
  Serious: Yes (Life-Threatening, Other)
  Sender: FDA-Public Use
  Company Number: JP-BRACCO-003494

PATIENT
  Sex: Female

DRUGS (5)
  1. ZENASPIRIN [Concomitant]
     Indication: CORONARY ARTERY DISEASE
     Route: 048
     Dates: start: 20090401, end: 20100501
  2. OMEPRAZOLE [Concomitant]
     Route: 048
     Dates: start: 20090301, end: 20100501
  3. IOPAMIDOL [Concomitant]
     Indication: ARTERIOGRAM CORONARY
     Dates: start: 20090410, end: 20090410
  4. IOPAMIDOL [Suspect]
     Indication: ANGIOGRAM
     Route: 042
     Dates: start: 20100401, end: 20100401
  5. IOPAMIDOL [Suspect]
     Indication: CORONARY ARTERY STENOSIS
     Route: 042
     Dates: start: 20100401, end: 20100401

REACTIONS (5)
  - CHOKING SENSATION [None]
  - ERYTHEMA MULTIFORME [None]
  - LYMPHADENOPATHY [None]
  - OROPHARYNGEAL PAIN [None]
  - PHARYNGEAL ERYTHEMA [None]
